FAERS Safety Report 20102898 (Version 2)
Quarter: 2021Q4

REPORT INFORMATION
  Report Type: Spontaneous
  Country: ES (occurrence: ES)
  Receive Date: 20211123
  Receipt Date: 20211201
  Transmission Date: 20220303
  Serious: Yes (Death, Hospitalization, Other)
  Sender: FDA-Public Use
  Company Number: ES-NOVARTISPH-NVSC2021ES267673

PATIENT
  Age: 66 Year
  Sex: Female

DRUGS (11)
  1. FILGRASTIM [Suspect]
     Active Substance: FILGRASTIM
     Indication: Neutropenia
     Dosage: 300 UG, UNKNOWN
     Route: 065
  2. CAPECITABINE [Concomitant]
     Active Substance: CAPECITABINE
     Indication: Breast cancer metastatic
     Dosage: 1200 MG/M2, QD (600 MILLIGRAM/SQ. METER, BID)
     Route: 065
  3. CAPECITABINE [Concomitant]
     Active Substance: CAPECITABINE
     Dosage: 2000 MG/M2, QD (1000 MILLIGRAM/SQ. METER, BID FOR 14 DAYS REPEATED ON DAY 22)
     Route: 065
  4. CAPECITABINE [Concomitant]
     Active Substance: CAPECITABINE
     Dosage: 2000 MG, QD (1000 MILLIGRAM, Q12H (FOR 14 DAYS AND THEN REST FOR 07 DAYS)
     Route: 065
  5. CAPECITABINE [Concomitant]
     Active Substance: CAPECITABINE
     Dosage: 1600 MG/M2, QD (800 MILLIGRAM/SQ. METER, BID)
     Route: 065
  6. CYCLOPHOSPHAMIDE [Concomitant]
     Active Substance: CYCLOPHOSPHAMIDE
     Indication: Neoplasm malignant
     Dosage: 600 MILLIGRAM/SQ. METER 21 DAYS CYCLES
     Route: 042
  7. MORPHINE [Concomitant]
     Active Substance: MORPHINE
     Indication: Product used for unknown indication
     Dosage: 60 MILLIGRAM, QD PER 24 HOURS
     Route: 042
  8. DOCETAXEL [Concomitant]
     Active Substance: DOCETAXEL
     Indication: Neoplasm malignant
     Dosage: 100 MILLIGRAM/SQ. METER 21 DAY CYCLE VIA A 60 MINUTE
     Route: 042
  9. OMEPRAZOLE [Concomitant]
     Active Substance: OMEPRAZOLE
     Indication: Dyspepsia
     Dosage: 1 DF, QD
     Route: 065
  10. DOXORUBICIN [Concomitant]
     Active Substance: DOXORUBICIN
     Indication: Neoplasm malignant
     Dosage: 60 MILLIGRAM/SQ. METER 21 DAYS CYCLES
     Route: 042
  11. BRIVUDINE [Concomitant]
     Active Substance: BRIVUDINE
     Indication: Herpes zoster
     Dosage: 125 MILLIGRAM, QD FOR SEVEN DAYS
     Route: 065

REACTIONS (10)
  - Lymphoedema [Fatal]
  - Death [Fatal]
  - Neoplasm progression [Fatal]
  - Anaemia [Fatal]
  - Palmar-plantar erythrodysaesthesia syndrome [Fatal]
  - Poor venous access [Fatal]
  - Pharyngeal inflammation [Fatal]
  - Onycholysis [Fatal]
  - Tooth discolouration [Fatal]
  - Vein disorder [Fatal]
